FAERS Safety Report 7790279-0 (Version None)
Quarter: 2011Q3

REPORT INFORMATION
  Report Type: 
  Country: None (occurrence: None)
  Receive Date: 20110930
  Receipt Date: 20110927
  Transmission Date: 20111222
  Serious: Yes (Hospitalization)
  Sender: FDA-Public Use
  Company Number: US-PFIZER INC-2011223069

PATIENT
  Sex: Female
  Weight: 57.415 kg

DRUGS (6)
  1. NICOTINE [Suspect]
     Dosage: UNK
  2. SYNTHROID [Concomitant]
     Indication: HYPERTHYROIDISM
     Dosage: UNK
  3. KLONOPIN [Concomitant]
     Dosage: UNK
  4. NICOTROL [Suspect]
     Indication: SMOKING CESSATION THERAPY
     Dosage: UNK, 1X/DAY
     Route: 055
     Dates: start: 20110927, end: 20110927
  5. ACETYLSALICYLIC ACID [Concomitant]
     Dosage: UNK
  6. VALIUM [Concomitant]
     Dosage: UNK

REACTIONS (4)
  - SWELLING [None]
  - DYSGEUSIA [None]
  - PRURITUS [None]
  - FEELING ABNORMAL [None]
